FAERS Safety Report 4382960-0 (Version None)
Quarter: 2004Q2

REPORT INFORMATION
  Report Type: 
  Country: None (occurrence: None)
  Receive Date: 20040622
  Receipt Date: 20040511
  Transmission Date: 20050107
  Serious: Yes (Life-Threatening, Hospitalization, Other)
  Sender: FDA-Public Use
  Company Number: US-MERCK-0405USA00949

PATIENT
  Age: 63 Year
  Sex: Male
  Weight: 71 kg

DRUGS (26)
  1. [THERAPY UNSPECIFIED] [Concomitant]
     Route: 065
  2. TYLENOL [Concomitant]
     Route: 065
  3. PROLEUKIN [Concomitant]
     Route: 042
     Dates: start: 20040201
  4. PROLEUKIN [Concomitant]
     Route: 042
     Dates: start: 20040201
  5. PROLEUKIN [Concomitant]
     Route: 042
     Dates: start: 20040201
  6. PROLEUKIN [Concomitant]
     Route: 042
     Dates: start: 20040201
  7. PROLEUKIN [Concomitant]
     Route: 065
     Dates: start: 20040201
  8. EMEND [Suspect]
     Indication: PROPHYLAXIS OF NAUSEA AND VOMITING
     Route: 048
     Dates: start: 20040213, end: 20040213
  9. EMEND [Suspect]
     Route: 048
     Dates: start: 20040214, end: 20040217
  10. LOMOTIL [Concomitant]
     Route: 065
  11. CISPLATIN [Concomitant]
     Route: 065
     Dates: start: 20040201
  12. DACARBAZINE [Concomitant]
     Route: 042
     Dates: start: 20040201
  13. BENADRYL [Concomitant]
     Route: 065
  14. ATARAX [Concomitant]
     Route: 065
  15. INTERFERON ALFA [Concomitant]
     Route: 051
     Dates: start: 20040201
  16. INTRON A [Concomitant]
     Route: 065
  17. ATIVAN [Concomitant]
     Indication: NAUSEA
     Route: 065
  18. DEMEROL [Concomitant]
     Route: 065
  19. REGLAN [Concomitant]
     Route: 065
  20. EUCERIN CREME [Concomitant]
     Route: 065
  21. BACTROBAN [Concomitant]
     Route: 065
  22. ZOFRAN [Concomitant]
     Route: 042
  23. PROTONIX [Concomitant]
     Route: 065
  24. NEULASTA [Concomitant]
     Route: 065
     Dates: start: 20040201
  25. VASELINE [Concomitant]
     Route: 065
  26. VINBLASTINE SULFATE [Suspect]
     Route: 042
     Dates: start: 20040201

REACTIONS (5)
  - DRUG INTERACTION [None]
  - MEDICATION ERROR [None]
  - PANCYTOPENIA [None]
  - PNEUMONIA [None]
  - SEPSIS [None]
